FAERS Safety Report 11057314 (Version 2)
Quarter: 2019Q4

REPORT INFORMATION
  Report Type: Spontaneous
  Country: TR (occurrence: TR)
  Receive Date: 20150422
  Receipt Date: 20191220
  Transmission Date: 20200122
  Serious: Yes (Hospitalization)
  Sender: FDA-Public Use
  Company Number: TR-B.I. PHARMACEUTICALS,INC./RIDGEFIELD-2015-BI-21546GD

PATIENT
  Age: 57 Year
  Sex: Male

DRUGS (7)
  1. PEXOLA [Suspect]
     Active Substance: PRAMIPEXOLE DIHYDROCHLORIDE
     Route: 065
  2. SILDENAFIL. [Suspect]
     Active Substance: SILDENAFIL
     Indication: ERECTILE DYSFUNCTION
     Route: 065
  3. PEXOLA [Suspect]
     Active Substance: PRAMIPEXOLE DIHYDROCHLORIDE
     Indication: PARKINSON^S DISEASE
     Route: 065
  4. PANAX GINSENG [Concomitant]
     Active Substance: ASIAN GINSENG
     Indication: ERECTILE DYSFUNCTION
     Route: 065
  5. AMANTADINE SULFATE [Suspect]
     Active Substance: AMANTADINE SULFATE
     Indication: PARKINSON^S DISEASE
     Route: 065
  6. RASAGILINE MESYLATE. [Suspect]
     Active Substance: RASAGILINE MESYLATE
     Indication: PARKINSON^S DISEASE
     Route: 065
  7. ASIAN GINSENG [Suspect]
     Active Substance: ASIAN GINSENG
     Indication: PARKINSON^S DISEASE
     Route: 065

REACTIONS (5)
  - Mania [Unknown]
  - Persecutory delusion [Unknown]
  - Paranoia [Unknown]
  - Aggression [Unknown]
  - Psychotic disorder [Unknown]
